FAERS Safety Report 5927334-3 (Version None)
Quarter: 2008Q4

REPORT INFORMATION
  Report Type: 
  Country: None (occurrence: None)
  Receive Date: 20081020
  Receipt Date: 20081006
  Transmission Date: 20090506
  Serious: Yes (Other)
  Sender: FDA-Public Use
  Company Number: 1-16671245

PATIENT
  Age: 13 Year
  Sex: Female
  Weight: 63.5036 kg

DRUGS (3)
  1. OVIDE [Suspect]
     Indication: LICE INFESTATION
     Dosage: ONE BOTTLE TO SCALP, ONCE, CUTANEOUS
     Route: 003
     Dates: start: 20080924, end: 20080924
  2. NIX [Concomitant]
  3. RID (PYRETHRUM EXTRACT AND PIPERONYL BUTOXIDE) [Concomitant]

REACTIONS (7)
  - APPLICATION SITE ERYTHEMA [None]
  - APPLICATION SITE EXFOLIATION [None]
  - APPLICATION SITE PAIN [None]
  - APPLICATION SITE SCAB [None]
  - APPLICATION SITE VESICLES [None]
  - CAUSTIC INJURY [None]
  - SKIN BURNING SENSATION [None]
